FAERS Safety Report 11234861 (Version 2)
Quarter: 2015Q3

REPORT INFORMATION
  Report Type: Spontaneous
  Country: US (occurrence: US)
  Receive Date: 20150702
  Receipt Date: 20150710
  Transmission Date: 20151125
  Serious: No
  Sender: FDA-Public Use
  Company Number: US-009507513-1506USA002102

PATIENT
  Age: 19 Year
  Sex: Female
  Weight: 88.44 kg

DRUGS (1)
  1. NEXPLANON [Suspect]
     Active Substance: ETONOGESTREL
     Indication: CONTRACEPTION
     Dosage: EVERY 3 YEARS, IN LEFT ARM
     Route: 059
     Dates: start: 20150430

REACTIONS (5)
  - Device breakage [Unknown]
  - Implant site pain [Unknown]
  - Product quality issue [Unknown]
  - Headache [Unknown]
  - Implant site bruising [Unknown]

NARRATIVE: CASE EVENT DATE: 201505
